FAERS Safety Report 7483865-9 (Version None)
Quarter: 2011Q2

REPORT INFORMATION
  Report Type: 
  Country: None (occurrence: None)
  Receive Date: 20110517
  Receipt Date: 20110429
  Transmission Date: 20111010
  Serious: No
  Sender: FDA-Public Use
  Company Number: US-B.I. PHARMACEUTICALS,INC./RIDGEFIELD-2011-BP-06115BP

PATIENT
  Age: 84 Year
  Sex: Female

DRUGS (6)
  1. CARDIZEM [Concomitant]
     Dosage: 240 MG
     Route: 048
  2. PREDNISONE [Concomitant]
     Indication: MYALGIA
     Dosage: 3 MG
     Route: 048
  3. LIPITOR [Concomitant]
     Indication: BLOOD CHOLESTEROL
     Route: 048
  4. PRADAXA [Suspect]
     Indication: ATRIAL FIBRILLATION
     Dosage: 300 MG
     Route: 048
     Dates: start: 20100204
  5. DIGOXIN [Concomitant]
     Route: 048
  6. CARDIA [Concomitant]

REACTIONS (1)
  - ASTHENIA [None]
